FAERS Safety Report 9315088 (Version 1)
Quarter: 2013Q2

REPORT INFORMATION
  Report Type: Spontaneous
  Country: US (occurrence: US)
  Receive Date: 20130529
  Receipt Date: 20130529
  Transmission Date: 20140414
  Serious: Yes (Death)
  Sender: FDA-Public Use
  Company Number: US-JNJFOC-20130520751

PATIENT
  Sex: Female

DRUGS (1)
  1. UNSPECIFIED FENTANYL TRANSDERMAL SYSTEM [Suspect]
     Indication: SCIATICA
     Dosage: EVERY 48 TO 72 HOURS
     Route: 062

REACTIONS (3)
  - Death [Fatal]
  - Wrong technique in drug usage process [Fatal]
  - Drug prescribing error [Unknown]
